FAERS Safety Report 10510634 (Version 1)
Quarter: 2014Q4

REPORT INFORMATION
  Report Type: Spontaneous
  Country: US (occurrence: None)
  Receive Date: 20141009
  Receipt Date: 20141009
  Transmission Date: 20150528
  Serious: Yes (Life-Threatening, Hospitalization)
  Sender: FDA-Public Use
  Company Number: None

PATIENT
  Age: 68 Year
  Sex: Male
  Weight: 74.1 kg

DRUGS (1)
  1. METFORMIN [Suspect]
     Active Substance: METFORMIN HYDROCHLORIDE
     Dates: start: 20090708, end: 20130909

REACTIONS (8)
  - Dyspnoea [None]
  - Unresponsive to stimuli [None]
  - Dialysis [None]
  - Metabolic acidosis [None]
  - Blood creatinine increased [None]
  - Hyperkalaemia [None]
  - Renal failure [None]
  - Refusal of treatment by patient [None]

NARRATIVE: CASE EVENT DATE: 20130905
